FAERS Safety Report 19019315 (Version 2)
Quarter: 2021Q3

REPORT INFORMATION
  Report Type: Spontaneous
  Country: US (occurrence: US)
  Receive Date: 20210317
  Receipt Date: 20210913
  Transmission Date: 20211014
  Serious: Yes (Death, Life-Threatening, Other)
  Sender: FDA-Public Use
  Company Number: US-AMNEAL PHARMACEUTICALS-2021-AMRX-00820

PATIENT
  Age: 46 Year
  Sex: Female
  Weight: 92.06 kg

DRUGS (6)
  1. ELAGOLIX SODIUM [Suspect]
     Active Substance: ELAGOLIX SODIUM
     Indication: UTERINE LEIOMYOMA
     Dosage: 300 MILLIGRAM, 1X/DAY
     Route: 048
     Dates: start: 20200826, end: 20210108
  2. ACTIVELLA [Suspect]
     Active Substance: ESTRADIOL\NORETHINDRONE ACETATE
     Indication: UTERINE LEIOMYOMA
     Dosage: 1 MG/0.5MG, 1X/DAY
     Route: 048
     Dates: start: 20200826, end: 20210108
  3. IBUPROFEN. [Concomitant]
     Active Substance: IBUPROFEN
     Indication: LIGAMENT SPRAIN
     Dosage: 800 MILLIGRAM, 1 AS NEEDED
     Route: 048
     Dates: start: 20191002
  4. ROBAXIN [Concomitant]
     Active Substance: METHOCARBAMOL
     Indication: LIGAMENT SPRAIN
     Dosage: 500 MILLIGRAM, 1 AS NEEDED
     Route: 048
     Dates: start: 20191002
  5. VITAMIN D [COLECALCIFEROL] [Concomitant]
     Active Substance: CHOLECALCIFEROL
     Indication: SUPPLEMENTATION THERAPY
     Dosage: 1000 IU INTERNATIONAL UNIT(S), 1X/DAY
     Route: 048
     Dates: start: 20190617
  6. IRON [Concomitant]
     Active Substance: IRON
     Indication: SUPPLEMENTATION THERAPY
     Dosage: 65 MILLIGRAM, 1X/DAY
     Route: 048
     Dates: start: 20190420

REACTIONS (2)
  - Adverse event [Fatal]
  - Cardiac failure congestive [Unknown]

NARRATIVE: CASE EVENT DATE: 2021
